FAERS Safety Report 8337869-4 (Version None)
Quarter: 2012Q2

REPORT INFORMATION
  Report Type: 
  Country: None (occurrence: None)
  Receive Date: 20120504
  Receipt Date: 20120423
  Transmission Date: 20120825
  Serious: Yes (Other)
  Sender: FDA-Public Use
  Company Number: CA-ELI_LILLY_AND_COMPANY-CA201204008332

PATIENT
  Age: 68 Year
  Sex: Male

DRUGS (16)
  1. ELAVIL [Concomitant]
  2. MISOPROSTOL [Concomitant]
  3. FERROUS SULFATE TAB [Concomitant]
  4. ROCALTROL [Concomitant]
  5. CLONAZEPAM [Concomitant]
  6. LYRICA [Concomitant]
  7. PREVACID [Concomitant]
  8. ZOMIG [Concomitant]
  9. D-TABS [Concomitant]
  10. MOTILIUM [Concomitant]
  11. MULTI-VITAMINS [Concomitant]
  12. FORTEO [Suspect]
     Indication: OSTEOPOROSIS
     Dosage: 20 UG, QD
     Route: 058
     Dates: start: 20110329
  13. TRAZODONE HCL [Concomitant]
  14. PANTOPRAZOLE SODIUM [Concomitant]
  15. SYNTHROID [Concomitant]
  16. REMICADE [Concomitant]

REACTIONS (2)
  - FATIGUE [None]
  - ANAEMIA [None]
